FAERS Safety Report 9512291 (Version 1)
Quarter: 2013Q3

REPORT INFORMATION
  Report Type: Spontaneous
  Country: US (occurrence: US)
  Receive Date: 20130910
  Receipt Date: 20130910
  Transmission Date: 20140515
  Serious: No
  Sender: FDA-Public Use
  Company Number: -SAAVPROD-BMS16163917

PATIENT
  Sex: Male

DRUGS (4)
  1. AVAPRO [Suspect]
     Dosage: IN MORNING + EVENING
  2. NORVASC [Concomitant]
     Dosage: ALSO TAKEN 10MG
  3. ATENOLOL [Concomitant]
  4. COREG [Concomitant]

REACTIONS (1)
  - Incorrect dose administered [Unknown]
